FAERS Safety Report 4870723-9 (Version None)
Quarter: 2006Q1

REPORT INFORMATION
  Report Type: 
  Country: None (occurrence: None)
  Receive Date: 20060103
  Receipt Date: 20051222
  Transmission Date: 20060701
  Serious: Yes (Hospitalization)
  Sender: FDA-Public Use
  Company Number: FR-AVENTIS-200514270FR

PATIENT
  Age: 69 Year
  Sex: Female

DRUGS (10)
  1. RIFADIN [Suspect]
     Indication: INFECTION
     Route: 042
     Dates: start: 20050527, end: 20050705
  2. RIFADIN [Suspect]
     Indication: PACEMAKER COMPLICATION
     Route: 042
     Dates: start: 20050527, end: 20050705
  3. RIFADIN [Suspect]
     Indication: ENDOCARDITIS
     Route: 042
     Dates: start: 20050527, end: 20050705
  4. PREVISCAN [Suspect]
     Indication: INFECTION
     Route: 048
     Dates: start: 20050616, end: 20050704
  5. PREVISCAN [Suspect]
     Indication: PACEMAKER COMPLICATION
     Route: 048
     Dates: start: 20050616, end: 20050704
  6. PREVISCAN [Suspect]
     Indication: ENDOCARDITIS
     Route: 048
     Dates: start: 20050616, end: 20050704
  7. MOPRAL [Suspect]
     Route: 048
     Dates: start: 20050527, end: 20050703
  8. VANCOMYCIN [Suspect]
     Indication: INFECTION
     Route: 042
     Dates: start: 20050527, end: 20050703
  9. VANCOMYCIN [Suspect]
     Indication: PACEMAKER COMPLICATION
     Route: 042
     Dates: start: 20050527, end: 20050703
  10. VANCOMYCIN [Suspect]
     Indication: ENDOCARDITIS
     Route: 042
     Dates: start: 20050527, end: 20050703

REACTIONS (8)
  - ALANINE AMINOTRANSFERASE INCREASED [None]
  - DRUG RASH WITH EOSINOPHILIA AND SYSTEMIC SYMPTOMS [None]
  - EOSINOPHILIA [None]
  - ERYTHEMA [None]
  - HUMAN HERPES VIRUS 6 SEROLOGY POSITIVE [None]
  - LYMPHADENOPATHY [None]
  - PYREXIA [None]
  - RENAL FAILURE ACUTE [None]
